FAERS Safety Report 17611338 (Version 2)
Quarter: 2020Q2

REPORT INFORMATION
  Report Type: Spontaneous
  Country: US (occurrence: US)
  Receive Date: 20200401
  Receipt Date: 20200421
  Transmission Date: 20200713
  Serious: Yes (Hospitalization)
  Sender: FDA-Public Use
  Company Number: NVSC2020US088205

PATIENT
  Age: 69 Year
  Sex: Female
  Weight: 63.49 kg

DRUGS (1)
  1. XIIDRA [Suspect]
     Active Substance: LIFITEGRAST
     Indication: EYE DISORDER
     Dosage: 2 DF, QD
     Route: 065

REACTIONS (6)
  - Constipation [Unknown]
  - Fall [Unknown]
  - Nerve injury [Unknown]
  - Facial bones fracture [Unknown]
  - Multiple fractures [Unknown]
  - Loss of consciousness [Unknown]

NARRATIVE: CASE EVENT DATE: 20200210
